FAERS Safety Report 12830230 (Version 1)
Quarter: 2016Q4

REPORT INFORMATION
  Report Type: Spontaneous
  Country: US (occurrence: US)
  Receive Date: 20161007
  Receipt Date: 20161007
  Transmission Date: 20170207
  Serious: Yes (Other)
  Sender: FDA-Public Use
  Company Number: US-SA-2016SA160190

PATIENT
  Age: 59 Year
  Sex: Female

DRUGS (1)
  1. AUBAGIO [Suspect]
     Active Substance: TERIFLUNOMIDE
     Route: 065

REACTIONS (9)
  - Feeling abnormal [Unknown]
  - Depression [Unknown]
  - Headache [Unknown]
  - Multiple sclerosis [Unknown]
  - Thinking abnormal [Unknown]
  - Hypoaesthesia [Unknown]
  - Anxiety [Unknown]
  - Disturbance in attention [Unknown]
  - Confusional state [Unknown]
